FAERS Safety Report 7544463-1 (Version None)
Quarter: 2011Q2

REPORT INFORMATION
  Report Type: 
  Country: None (occurrence: None)
  Receive Date: 20110613
  Receipt Date: 20091215
  Transmission Date: 20111010
  Serious: Yes (Death)
  Sender: FDA-Public Use
  Company Number: PHHY2009JP43061

PATIENT
  Sex: Male
  Weight: 47 kg

DRUGS (4)
  1. CHEMOTHERAPEUTICS NOS [Concomitant]
  2. SULFAMETHOXAZOLE [Concomitant]
     Indication: YOLK SAC TUMOUR SITE UNSPECIFIED
     Dosage: 1 DF, UNK
     Route: 048
     Dates: start: 20041204, end: 20090415
  3. BUFFERIN [Concomitant]
     Indication: YOLK SAC TUMOUR SITE UNSPECIFIED
     Dosage: 81 MG, UNK
     Route: 048
     Dates: start: 20081001, end: 20090415
  4. EXJADE [Suspect]
     Indication: IRON OVERLOAD
     Dosage: 50 MCI
     Route: 048
     Dates: start: 20090412, end: 20090415

REACTIONS (3)
  - NEOPLASM MALIGNANT [None]
  - YOLK SAC TUMOUR SITE UNSPECIFIED [None]
  - SYSTEMIC MYCOSIS [None]
